FAERS Safety Report 6347252-9 (Version None)
Quarter: 2009Q3

REPORT INFORMATION
  Report Type: 
  Country: None (occurrence: None)
  Receive Date: 20090910
  Receipt Date: 20090901
  Transmission Date: 20100115
  Serious: Yes (Hospitalization)
  Sender: FDA-Public Use
  Company Number: US-BAYER-200916991NA

PATIENT
  Age: 80 Year
  Sex: Female

DRUGS (21)
  1. AVELOX [Suspect]
     Indication: BRONCHOPNEUMONIA
     Dosage: TOTAL DAILY DOSE: 400 MG  UNIT DOSE: 400 MG
     Route: 048
     Dates: start: 20090309, end: 20090313
  2. METFORMIN HCL [Suspect]
     Indication: DRUG USE FOR UNKNOWN INDICATION
  3. MEDROL [Concomitant]
  4. ZOLOFT [Concomitant]
  5. CELEBREX [Concomitant]
  6. LISINOPRIL [Concomitant]
  7. REGLAN [Concomitant]
  8. PROTONIX [Concomitant]
  9. CRESTOR [Concomitant]
  10. POTASSIUM CHLORIDE [Concomitant]
  11. SINGULAIR [Concomitant]
  12. GLYBURIDE [Concomitant]
  13. CLARINEX [Concomitant]
  14. FLONASE [Concomitant]
  15. ADVAIR HFA [Concomitant]
  16. ALBUTEROL [Concomitant]
  17. LASIX [Concomitant]
  18. COUMADIN [Concomitant]
  19. ASPIRIN [Concomitant]
  20. MULTI-VITAMIN [Concomitant]
  21. CALCIUM [Concomitant]

REACTIONS (2)
  - ACUTE RESPIRATORY FAILURE [None]
  - LACTIC ACIDOSIS [None]
